FAERS Safety Report 25084542 (Version 1)
Quarter: 2025Q1

REPORT INFORMATION
  Report Type: Spontaneous
  Country: IT (occurrence: IT)
  Receive Date: 20250317
  Receipt Date: 20250317
  Transmission Date: 20250409
  Serious: Yes (Hospitalization)
  Sender: PFIZER
  Company Number: None

PATIENT
  Age: 58 Year
  Sex: Male
  Weight: 63 kg

DRUGS (3)
  1. IRINOTECAN HYDROCHLORIDE [Suspect]
     Active Substance: IRINOTECAN HYDROCHLORIDE
     Indication: Pancreatic carcinoma metastatic
     Route: 042
     Dates: start: 20250207, end: 20250207
  2. OXALIPLATIN [Suspect]
     Active Substance: OXALIPLATIN
     Indication: Pancreatic carcinoma metastatic
     Route: 042
     Dates: start: 20250207, end: 20250207
  3. FLUOROURACIL [Suspect]
     Active Substance: FLUOROURACIL
     Indication: Pancreatic carcinoma metastatic
     Route: 042
     Dates: start: 20250210, end: 20250212

REACTIONS (4)
  - Diarrhoea [Recovered/Resolved]
  - Dehydration [Recovered/Resolved]
  - Acute kidney injury [Recovered/Resolved]
  - Off label use [Unknown]

NARRATIVE: CASE EVENT DATE: 20250207
